FAERS Safety Report 25122576 (Version 1)
Quarter: 2025Q1

REPORT INFORMATION
  Report Type: Report from Study
  Country: CA (occurrence: CA)
  Receive Date: 20250326
  Receipt Date: 20250326
  Transmission Date: 20250409
  Serious: Yes (Death)
  Sender: ABBVIE
  Company Number: CA-ABBVIE-6196646

PATIENT
  Age: 72 Year
  Sex: Male

DRUGS (1)
  1. VENCLEXTA [Suspect]
     Active Substance: VENETOCLAX
     Indication: Acute myeloid leukaemia
     Dosage: FORM STRENGTH- 100 MG
     Route: 048
     Dates: start: 20240229

REACTIONS (1)
  - Death [Fatal]

NARRATIVE: CASE EVENT DATE: 20240729
